FAERS Safety Report 9087808 (Version 2)
Quarter: 2013Q2

REPORT INFORMATION
  Report Type: Spontaneous
  Country: JP (occurrence: JP)
  Receive Date: 20130201
  Receipt Date: 20130422
  Transmission Date: 20140414
  Serious: Yes (Life-Threatening, Other)
  Sender: FDA-Public Use
  Company Number: PHHY2013JP006519

PATIENT
  Age: 3 Year
  Sex: Male

DRUGS (6)
  1. DOXORUBICIN HYDROCHLORIDE SANDOZ [Suspect]
     Indication: CHEMOTHERAPY
     Dosage: 1.5 MG/KG, DAILY
     Route: 042
     Dates: start: 201105, end: 201110
  2. VEPESID [Suspect]
     Indication: CHEMOTHERAPY
     Dosage: 3.3 MG/KG, DAILY
     Route: 042
     Dates: start: 201105, end: 201110
  3. CYCLOPHOSPHAMIDE [Concomitant]
     Indication: CHEMOTHERAPY
  4. VINCRISTINE [Concomitant]
     Indication: CHEMOTHERAPY
     Dosage: 0.05 MG/KG,
     Route: 042
     Dates: start: 201105, end: 201110
  5. VINCRISTINE [Concomitant]
     Dosage: 0.067 MG/KG,
     Route: 042
  6. RADIATION THERAPY [Concomitant]
     Dosage: 10.8 GY, UNK

REACTIONS (8)
  - Acute monocytic leukaemia [Recovered/Resolved with Sequelae]
  - Decreased activity [Recovered/Resolved with Sequelae]
  - Abdominal pain [Recovered/Resolved with Sequelae]
  - Disseminated intravascular coagulation [Unknown]
  - Haemorrhage intracranial [Unknown]
  - Tumour lysis syndrome [Unknown]
  - Pulmonary oedema [Unknown]
  - Renal failure [Unknown]
